FAERS Safety Report 14235359 (Version 1)
Quarter: 2017Q4

REPORT INFORMATION
  Report Type: Spontaneous
  Country: US (occurrence: US)
  Receive Date: 20171129
  Receipt Date: 20171129
  Transmission Date: 20180321
  Serious: Yes (Hospitalization)
  Sender: FDA-Public Use
  Company Number: US-VIFOR (INTERNATIONAL) INC.-VIT-2016-07826

PATIENT
  Age: 80 Year
  Sex: Female
  Weight: 114.3 kg

DRUGS (15)
  1. AFRIN [Concomitant]
     Active Substance: OXYMETAZOLINE
  2. TYLENOL [Concomitant]
     Active Substance: ACETAMINOPHEN
  3. ACETYLSALICYLIC ACID [Concomitant]
     Active Substance: ASPIRIN
  4. GEMFIBROZIL. [Concomitant]
     Active Substance: GEMFIBROZIL
  5. LASIX [Concomitant]
     Active Substance: FUROSEMIDE
  6. LIPITOR [Concomitant]
     Active Substance: ATORVASTATIN CALCIUM
  7. LISINOPRIL. [Concomitant]
     Active Substance: LISINOPRIL
  8. HYDROCHLOROTHIAZIDE. [Concomitant]
     Active Substance: HYDROCHLOROTHIAZIDE
  9. CLONIDINE HYDROCHLORIDE. [Concomitant]
     Active Substance: CLONIDINE HYDROCHLORIDE
  10. MAG-OX [Concomitant]
     Active Substance: MAGNESIUM OXIDE
  11. VELTASSA [Suspect]
     Active Substance: PATIROMER
     Indication: HYPERKALAEMIA
     Route: 048
     Dates: start: 20160322
  12. BENADRYL [Concomitant]
     Active Substance: DIPHENHYDRAMINE HYDROCHLORIDE
  13. DULCOLAX NOS [Concomitant]
     Active Substance: BISACODYL OR DOCUSATE SODIUM
  14. MIRALAX [Concomitant]
     Active Substance: POLYETHYLENE GLYCOL 3350
  15. CARDIZEM CD [Concomitant]
     Active Substance: DILTIAZEM HYDROCHLORIDE

REACTIONS (6)
  - Oedema peripheral [Recovering/Resolving]
  - Blood creatine increased [Unknown]
  - Inappropriate schedule of drug administration [Unknown]
  - Weight decreased [Unknown]
  - Chest pain [Unknown]
  - Blood pressure increased [Unknown]

NARRATIVE: CASE EVENT DATE: 20160322
